FAERS Safety Report 6932640-X (Version None)
Quarter: 2010Q3

REPORT INFORMATION
  Report Type: 
  Country: None (occurrence: None)
  Receive Date: 20100819
  Receipt Date: 20100811
  Transmission Date: 20110219
  Serious: Yes (Hospitalization)
  Sender: FDA-Public Use
  Company Number: US-BAXTER-2010BH016793

PATIENT
  Age: 56 Year
  Sex: Female
  Weight: 70 kg

DRUGS (9)
  1. DIANEAL [Suspect]
     Indication: RENAL FAILURE CHRONIC
     Route: 033
     Dates: start: 20100525
  2. DIANEAL [Suspect]
     Indication: PERITONEAL DIALYSIS
     Route: 033
     Dates: start: 20100525
  3. PEPCID [Concomitant]
     Indication: PRODUCT USED FOR UNKNOWN INDICATION
     Route: 048
  4. COREG [Concomitant]
     Indication: HYPERTENSION
     Route: 048
  5. RENAGEL [Concomitant]
     Indication: PRODUCT USED FOR UNKNOWN INDICATION
     Route: 048
  6. HECTOROL [Concomitant]
     Indication: PRODUCT USED FOR UNKNOWN INDICATION
     Route: 048
  7. FERROUS SULFATE [Concomitant]
     Indication: ANAEMIA
     Route: 048
  8. SENSIPAR [Concomitant]
     Indication: HYPERPARATHYROIDISM
     Route: 048
  9. VITAMIN D [Concomitant]
     Indication: HYPERPARATHYROIDISM
     Route: 048

REACTIONS (5)
  - FLANK PAIN [None]
  - MUSCULOSKELETAL PAIN [None]
  - NAUSEA [None]
  - PNEUMONIA [None]
  - PYREXIA [None]
